FAERS Safety Report 7634970-5 (Version None)
Quarter: 2011Q3

REPORT INFORMATION
  Report Type: 
  Country: None (occurrence: None)
  Receive Date: 20110726
  Receipt Date: 20110719
  Transmission Date: 20111222
  Serious: Yes (Death, Other)
  Sender: FDA-Public Use
  Company Number: US-BAYER-201041658NA

PATIENT
  Age: 78 Year
  Sex: Male
  Weight: 95.238 kg

DRUGS (24)
  1. TRASYLOL [Suspect]
     Indication: CORONARY ARTERY BYPASS
     Dosage: 200 ML, UNK
     Route: 042
     Dates: start: 20050127
  2. TRASYLOL [Suspect]
     Indication: MITRAL VALVE REPAIR
  3. TRASYLOL [Suspect]
     Indication: ATRIAL SEPTAL DEFECT REPAIR
  4. LOVENOX [Concomitant]
  5. VERSED [Concomitant]
     Dosage: 1 MG, UNK
     Dates: start: 20050127
  6. SCOPOLAMINE [Concomitant]
     Dosage: 4 MG, UNK
     Dates: start: 20050127
  7. PLAVIX [Concomitant]
     Dosage: 150 MG, UNK
     Route: 048
     Dates: start: 20050123
  8. PLATELETS [Concomitant]
     Dosage: 3 PACKS
     Route: 042
     Dates: start: 20050127
  9. FRESH FROZEN PLASMA [Concomitant]
     Dosage: 2 U, UNK
     Route: 042
     Dates: start: 20050127
  10. REGLAN [Concomitant]
     Dosage: 10 MG, UNK
     Dates: start: 20050127
  11. PEPCID [Concomitant]
     Dosage: 20 MG, UNK
     Dates: start: 20050127
  12. TRASYLOL [Suspect]
     Indication: COX-MAZE PROCEDURE
  13. AMBIEN [Concomitant]
  14. VERSED [Concomitant]
     Dosage: UNK
     Route: 042
     Dates: start: 20050126
  15. FENTANYL [Concomitant]
     Dosage: UNK
     Route: 042
     Dates: start: 20050126
  16. RED BLOOD CELLS [Concomitant]
     Dosage: 2 U, UNK
     Route: 042
     Dates: start: 20050127
  17. MAGNEVIST [Concomitant]
     Indication: NUCLEAR MAGNETIC RESONANCE IMAGING BRAIN
     Dosage: 20 ML, UNK
     Dates: start: 20050123
  18. ZOCOR [Concomitant]
  19. ACTOS [Concomitant]
  20. CAPTOPRIL [Concomitant]
  21. AMIODARONE HCL [Concomitant]
     Dosage: 200 MG, QD LONG TERM USE
     Route: 048
  22. ACETYLSALICYLIC ACID SRT [Concomitant]
     Dosage: 325 MG, QD LONG TERM USE
     Route: 048
  23. COUMADIN [Concomitant]
     Dosage: UNK
     Route: 048
     Dates: start: 20050123
  24. OPTIRAY 350 [Concomitant]
     Indication: CATHETERISATION CARDIAC
     Dosage: 50 ML, UNK
     Dates: start: 20050126

REACTIONS (11)
  - EMOTIONAL DISTRESS [None]
  - UNEVALUABLE EVENT [None]
  - RENAL INJURY [None]
  - DEATH [None]
  - RENAL FAILURE [None]
  - FEAR [None]
  - ANXIETY [None]
  - MULTI-ORGAN FAILURE [None]
  - RENAL IMPAIRMENT [None]
  - STRESS [None]
  - PAIN [None]
